FAERS Safety Report 4772408-6 (Version None)
Quarter: 2005Q3

REPORT INFORMATION
  Report Type: 
  Country: None (occurrence: None)
  Receive Date: 20050919
  Receipt Date: 20050907
  Transmission Date: 20060218
  Serious: Yes (Other)
  Sender: FDA-Public Use
  Company Number: US-JNJFOC-20050901681

PATIENT
  Sex: Female

DRUGS (1)
  1. REMICADE [Suspect]
     Route: 042

REACTIONS (1)
  - BREAST CANCER [None]
